FAERS Safety Report 6794019-3 (Version None)
Quarter: 2010Q2

REPORT INFORMATION
  Report Type: 
  Country: None (occurrence: None)
  Receive Date: 20100624
  Receipt Date: 20061013
  Transmission Date: 20101027
  Serious: Yes (Hospitalization)
  Sender: FDA-Public Use
  Company Number: US-PFIZER INC-23100356

PATIENT
  Age: 70 Year
  Sex: Male
  Weight: 96 kg

DRUGS (11)
  1. ARGATROBAN [Suspect]
     Route: 042
     Dates: start: 20061011, end: 20061013
  2. VITAMIN C [Concomitant]
  3. REGULAR INSULIN [Concomitant]
  4. NOVOLOG [Concomitant]
  5. PREDNISONE [Concomitant]
  6. PROCRIT [Concomitant]
  7. COREG [Concomitant]
  8. IRON [Concomitant]
  9. PEPCID [Concomitant]
  10. NEURONTIN [Concomitant]
  11. NEBULIZER TREATMENTS [Concomitant]

REACTIONS (1)
  - INTERNATIONAL NORMALISED RATIO INCREASED [None]
